FAERS Safety Report 11505768 (Version 1)
Quarter: 2015Q3

REPORT INFORMATION
  Report Type: Spontaneous
  Country: US (occurrence: US)
  Receive Date: 20150915
  Receipt Date: 20150915
  Transmission Date: 20151125
  Serious: No
  Sender: FDA-Public Use
  Company Number: US-ROCHE-778973

PATIENT
  Age: 47 Year
  Sex: Female

DRUGS (3)
  1. PREDNISONE. [Concomitant]
     Active Substance: PREDNISONE
     Indication: AUTOIMMUNE HEPATITIS
     Route: 048
  2. RIBASPHERE [Suspect]
     Active Substance: RIBAVIRIN
     Indication: HEPATITIS C
     Dosage: TAKEN IN DIVIDED DOSES.
     Route: 048
  3. PEGASYS [Suspect]
     Active Substance: PEGINTERFERON ALFA-2A
     Indication: HEPATITIS C
     Dosage: FORM: PRE-FILLED SYRINGES.
     Route: 058

REACTIONS (3)
  - Rash erythematous [Unknown]
  - Insomnia [Unknown]
  - Injection site reaction [Unknown]

NARRATIVE: CASE EVENT DATE: 20110510
